FAERS Safety Report 7216933-7 (Version None)
Quarter: 2011Q1

REPORT INFORMATION
  Report Type: 
  Country: None (occurrence: None)
  Receive Date: 20110110
  Receipt Date: 20101123
  Transmission Date: 20110831
  Serious: Yes (Hospitalization)
  Sender: FDA-Public Use
  Company Number: US-BAYER-201038115NA

PATIENT
  Sex: Female
  Weight: 92.517 kg

DRUGS (9)
  1. XANAX [Concomitant]
     Indication: ANXIETY
  2. YASMIN [Suspect]
     Indication: ACNE
     Dosage: UNK
     Dates: start: 20030101, end: 20080101
  3. ASPIRIN [Concomitant]
     Indication: HEADACHE
  4. ALEVE [Concomitant]
  5. LEXAPRO [Concomitant]
  6. YASMIN [Suspect]
     Indication: CONTRACEPTION
  7. CELEXA [Concomitant]
     Indication: DEPRESSION
  8. MOTRIN [Concomitant]
  9. EFFEXOR [Concomitant]

REACTIONS (7)
  - INJURY [None]
  - PELVIC PAIN [None]
  - ABDOMINAL PAIN [None]
  - MICTURITION URGENCY [None]
  - DYSURIA [None]
  - NEPHROLITHIASIS [None]
  - BACK PAIN [None]
